FAERS Safety Report 20591457 (Version 1)
Quarter: 2022Q1

REPORT INFORMATION
  Report Type: Spontaneous
  Country: US (occurrence: US)
  Receive Date: 20220314
  Receipt Date: 20220314
  Transmission Date: 20220423
  Serious: Yes (Hospitalization, Other)
  Sender: FDA-Public Use
  Company Number: US-OTSUKA-2022_010975

PATIENT
  Age: 21 Month
  Sex: Male

DRUGS (1)
  1. ARIPIPRAZOLE [Suspect]
     Active Substance: ARIPIPRAZOLE
     Indication: Product used for unknown indication
     Dosage: 52 MG
     Route: 065

REACTIONS (9)
  - Depressed level of consciousness [Unknown]
  - Electrocardiogram ST segment depression [Not Recovered/Not Resolved]
  - Muscle spasms [Recovered/Resolved]
  - Irritability [Recovered/Resolved]
  - Lethargy [Unknown]
  - Tachycardia [Recovered/Resolved]
  - Hypertension [Recovered/Resolved]
  - Tremor [Recovered/Resolved]
  - Accidental overdose [Unknown]
